FAERS Safety Report 10192863 (Version 2)
Quarter: 2014Q3

REPORT INFORMATION
  Report Type: Spontaneous
  Country: JP (occurrence: JP)
  Receive Date: 20140523
  Receipt Date: 20140722
  Transmission Date: 20150326
  Serious: Yes (Other)
  Sender: FDA-Public Use
  Company Number: JP-ASTRAZENECA-2014SE34863

PATIENT
  Age: 79 Year
  Sex: Male

DRUGS (4)
  1. CASODEX [Suspect]
     Active Substance: BICALUTAMIDE
     Indication: PROSTATE CANCER
     Route: 048
     Dates: start: 201311
  2. CASODEX [Suspect]
     Active Substance: BICALUTAMIDE
     Indication: PROSTATE CANCER
     Route: 048
     Dates: end: 20140513
  3. DIFLUCAN [Concomitant]
     Active Substance: FLUCONAZOLE
     Indication: INFECTION
     Dosage: DOSE UNKNOWN
     Route: 065
  4. ANCOTIL [Concomitant]
     Active Substance: FLUCYTOSINE
     Indication: INFECTION
     Dosage: DOSE UNKNOWN
     Route: 065

REACTIONS (3)
  - Nausea [Unknown]
  - Intentional product misuse [Unknown]
  - Bone marrow failure [Unknown]
